FAERS Safety Report 14602560 (Version 2)
Quarter: 2018Q1

REPORT INFORMATION
  Report Type: Spontaneous
  Country: US (occurrence: US)
  Receive Date: 20180306
  Receipt Date: 20180308
  Transmission Date: 20180509
  Serious: No
  Sender: FDA-Public Use
  Company Number: US-PFIZER INC-2018091002

PATIENT
  Age: 36 Year
  Sex: Female
  Weight: 54.43 kg

DRUGS (1)
  1. EFFEXOR XR [Suspect]
     Active Substance: VENLAFAXINE HYDROCHLORIDE
     Dosage: 112.5 MG, UNK
     Dates: start: 20180211

REACTIONS (2)
  - Mood swings [Unknown]
  - Depressed mood [Unknown]

NARRATIVE: CASE EVENT DATE: 20180302
